FAERS Safety Report 15936600 (Version 1)
Quarter: 2019Q1

REPORT INFORMATION
  Report Type: Spontaneous
  Country: US (occurrence: US)
  Receive Date: 20190207
  Receipt Date: 20190207
  Transmission Date: 20190417
  Serious: Yes (Death, Hospitalization, Disabling, Other)
  Sender: FDA-Public Use
  Company Number: None

PATIENT
  Age: 72 Year
  Sex: Male

DRUGS (2)
  1. DURVALUMAB. [Suspect]
     Active Substance: DURVALUMAB
     Indication: NON-SMALL CELL LUNG CANCER
  2. DURVALUMAB. [Concomitant]
     Active Substance: DURVALUMAB

REACTIONS (3)
  - Pneumonitis [None]
  - Pulmonary fibrosis [None]
  - Computerised tomogram thorax abnormal [None]

NARRATIVE: CASE EVENT DATE: 20190127
